FAERS Safety Report 23517181 (Version 1)
Quarter: 2024Q1

REPORT INFORMATION
  Report Type: Spontaneous
  Country: US (occurrence: US)
  Receive Date: 20240213
  Receipt Date: 20240213
  Transmission Date: 20240410
  Serious: Yes (Hospitalization)
  Sender: FDA-Public Use
  Company Number: US-009507513-2402USA002825

PATIENT
  Sex: Female

DRUGS (9)
  1. KEYTRUDA [Suspect]
     Active Substance: PEMBROLIZUMAB
     Dosage: UNK
  2. INLYTA [Suspect]
     Active Substance: AXITINIB
     Dosage: 5 MILLIGRAM, Q12H
     Route: 048
     Dates: start: 20230817
  3. INLYTA [Suspect]
     Active Substance: AXITINIB
     Dosage: 7 MILLIGRAM, Q12H
     Route: 048
  4. LINZESS [Concomitant]
     Active Substance: LINACLOTIDE
  5. IRON [Concomitant]
     Active Substance: IRON
  6. VITAMIN D NOS [Concomitant]
     Active Substance: VITAMIN D NOS
  7. XARELTO [Concomitant]
     Active Substance: RIVAROXABAN
  8. ALBUTEROL SULFATE [Concomitant]
     Active Substance: ALBUTEROL SULFATE
  9. VITAMIN B-1 [THIAMINE HYDROCHLORIDE] [Concomitant]

REACTIONS (3)
  - Drug hypersensitivity [Recovering/Resolving]
  - Weight decreased [Recovering/Resolving]
  - Mobility decreased [Recovering/Resolving]

NARRATIVE: CASE EVENT DATE: 20240101
